FAERS Safety Report 5635954-9 (Version None)
Quarter: 2008Q1

REPORT INFORMATION
  Report Type: 
  Country: None (occurrence: None)
  Receive Date: 20080224
  Receipt Date: 20080215
  Transmission Date: 20080703
  Serious: Yes (Other)
  Sender: FDA-Public Use
  Company Number: PHFR2006GB03349

PATIENT
  Age: 33 Year
  Sex: Male

DRUGS (2)
  1. CLOZARIL [Suspect]
     Indication: SCHIZOPHRENIA
     Dosage: 450MG DAILY
     Route: 048
     Dates: start: 20050729, end: 20060703
  2. BETA BLOCKING AGENTS [Concomitant]
     Route: 065

REACTIONS (2)
  - HEART RATE INCREASED [None]
  - SINUS TACHYCARDIA [None]
